FAERS Safety Report 4434882-4 (Version None)
Quarter: 2004Q3

REPORT INFORMATION
  Report Type: 
  Country: None (occurrence: None)
  Receive Date: 20040726
  Receipt Date: 20040506
  Transmission Date: 20050211
  Serious: No
  Sender: FDA-Public Use
  Company Number: USA040566854

PATIENT
  Age: 75 Year
  Sex: Female
  Weight: 35 kg

DRUGS (1)
  1. FORTEO [Suspect]
     Indication: OSTEOPOROSIS
     Dates: start: 20040408

REACTIONS (5)
  - FEELING ABNORMAL [None]
  - FEELING HOT [None]
  - INJECTION SITE HAEMORRHAGE [None]
  - MEDICATION ERROR [None]
  - OVERDOSE [None]
